FAERS Safety Report 18320970 (Version 2)
Quarter: 2020Q4

REPORT INFORMATION
  Report Type: Spontaneous
  Country: BR (occurrence: BR)
  Receive Date: 20200929
  Receipt Date: 20201005
  Transmission Date: 20210113
  Serious: Yes (Other)
  Sender: FDA-Public Use
  Company Number: BR-SUNPHARMA-2020R1-262120AA

PATIENT
  Sex: Female

DRUGS (1)
  1. DUAC [Suspect]
     Active Substance: BENZOYL PEROXIDE\CLINDAMYCIN PHOSPHATE
     Indication: SKIN DISORDER
     Dosage: UNK (45 G)
     Route: 065
     Dates: start: 20200908

REACTIONS (9)
  - Macule [Unknown]
  - Insomnia [Unknown]
  - Product use in unapproved indication [Unknown]
  - Pruritus [Unknown]
  - Wound [Unknown]
  - Swelling [Unknown]
  - Oedema [Unknown]
  - Drug hypersensitivity [Unknown]
  - Erythema [Unknown]

NARRATIVE: CASE EVENT DATE: 20200909
